FAERS Safety Report 5830857-9 (Version None)
Quarter: 2008Q3

REPORT INFORMATION
  Report Type: 
  Country: None (occurrence: None)
  Receive Date: 20080801
  Receipt Date: 20080103
  Transmission Date: 20090109
  Serious: No
  Sender: FDA-Public Use
  Company Number: US-BRISTOL-MYERS SQUIBB COMPANY-14030159

PATIENT
  Age: 82 Year
  Sex: Female
  Weight: 61 kg

DRUGS (12)
  1. COUMADIN [Suspect]
     Indication: ATRIAL FIBRILLATION
     Route: 048
  2. ALTACE [Concomitant]
  3. LEXAPRO [Concomitant]
  4. BUMETANIDE [Concomitant]
  5. TOPROL-XL [Concomitant]
  6. POTASSIUM CHLORIDE [Concomitant]
  7. AMBIEN [Concomitant]
  8. PROTONIX [Concomitant]
  9. MULTI-VITAMIN [Concomitant]
  10. CITRACAL [Concomitant]
  11. VITAMIN D [Concomitant]
  12. ACCUVITE [Concomitant]

REACTIONS (1)
  - RASH PRURITIC [None]
